FAERS Safety Report 9203568 (Version 2)
Quarter: 2013Q2

REPORT INFORMATION
  Report Type: Spontaneous
  Country: FR (occurrence: None)
  Receive Date: 20130329
  Receipt Date: 20130404
  Transmission Date: 20140414
  Serious: Yes (Other)
  Sender: FDA-Public Use
  Company Number: SYM-2013-01929

PATIENT
  Age: 64 Year
  Sex: Female

DRUGS (11)
  1. 5-FU [Suspect]
     Indication: COLON CANCER METASTATIC
     Route: 040
     Dates: start: 20130108, end: 20130108
  2. IRINOTECAN [Suspect]
     Indication: COLON CANCER METASTATIC
     Route: 042
     Dates: start: 20130108, end: 20130108
  3. LEUCOVORIN [Suspect]
     Indication: COLON CANCER METASTATIC
     Route: 042
     Dates: start: 20130108, end: 20130108
  4. AFLIBERCEPT [Suspect]
     Route: 042
     Dates: start: 20130108, end: 20130108
  5. ANALGESICS [Concomitant]
  6. LEXOMIL (BROMAZEPAM) [Concomitant]
  7. ANGIOTENSIN II ANTAGONISTS [Concomitant]
  8. SEROPLEX (ESCITALOPRAM OXALATE) [Concomitant]
  9. DIFFU K (POTASSIUM CHLORIDE) [Concomitant]
  10. SEROTONIN ANTAGONISTS [Concomitant]
  11. ANTICHOLINERGICS [Concomitant]

REACTIONS (4)
  - Blood alkaline phosphatase increased [None]
  - Aspartate aminotransferase increased [None]
  - Alanine aminotransferase increased [None]
  - Blood lactate dehydrogenase increased [None]
